FAERS Safety Report 21168390 (Version 2)
Quarter: 2022Q3

REPORT INFORMATION
  Report Type: Spontaneous
  Country: US (occurrence: US)
  Receive Date: 20220803
  Receipt Date: 20220817
  Transmission Date: 20221026
  Serious: No
  Sender: FDA-Public Use
  Company Number: US-ELI_LILLY_AND_COMPANY-US202207007215

PATIENT
  Age: 78 Year
  Sex: Male

DRUGS (1)
  1. BEBTELOVIMAB [Suspect]
     Active Substance: BEBTELOVIMAB
     Indication: COVID-19
     Dosage: UNK, UNKNOWN
     Route: 042
     Dates: start: 20220712, end: 20220712

REACTIONS (3)
  - Erythema [Unknown]
  - SARS-CoV-2 test positive [Unknown]
  - Rash [Unknown]

NARRATIVE: CASE EVENT DATE: 20220701
